FAERS Safety Report 5612406-3 (Version None)
Quarter: 2008Q1

REPORT INFORMATION
  Report Type: 
  Country: None (occurrence: None)
  Receive Date: 20080204
  Receipt Date: 20080122
  Transmission Date: 20080703
  Serious: Yes (Hospitalization)
  Sender: FDA-Public Use
  Company Number: GB-ROCHE-542971

PATIENT
  Age: 43 Year
  Sex: Male
  Weight: 149 kg

DRUGS (4)
  1. ORLISTAT [Suspect]
     Indication: OBESITY
     Route: 048
     Dates: start: 20070901
  2. 11 CONCOMITANT DRUGS [Concomitant]
     Dosage: FREQUENCY: DAILY.
  3. 11 CONCOMITANT DRUGS [Concomitant]
     Dosage: FREQUENCY: DAILY.
  4. 1 CONCOMITANT DRUG [Concomitant]
     Dosage: FREQUENCY: DAILY.

REACTIONS (1)
  - MYOCARDIAL INFARCTION [None]
